FAERS Safety Report 8005560-X (Version None)
Quarter: 2011Q4

REPORT INFORMATION
  Report Type: 
  Country: None (occurrence: None)
  Receive Date: 20111223
  Receipt Date: 20111208
  Transmission Date: 20120403
  Serious: Yes (Other)
  Sender: FDA-Public Use
  Company Number: CA-ROCHE-GNE282824

PATIENT
  Sex: Female
  Weight: 64.569 kg

DRUGS (3)
  1. XOLAIR [Suspect]
     Dosage: 300 MG, 1/MONTH
     Route: 058
     Dates: start: 20100106
  2. XOLAIR [Suspect]
     Dosage: 300 MG, 1/MONTH
     Route: 058
     Dates: start: 20091113
  3. XOLAIR [Suspect]
     Indication: ASTHMA
     Dosage: 300 MG, 1/MONTH
     Route: 058
     Dates: start: 20080910

REACTIONS (9)
  - SINUSITIS [None]
  - HYPERSENSITIVITY [None]
  - CONJUNCTIVITIS [None]
  - SINUS CONGESTION [None]
  - WHEEZING [None]
  - ASTHMA [None]
  - ADENOVIRUS INFECTION [None]
  - NASAL CONGESTION [None]
  - OBSTRUCTIVE AIRWAYS DISORDER [None]
